FAERS Safety Report 6770700-7 (Version None)
Quarter: 2010Q2

REPORT INFORMATION
  Report Type: 
  Country: None (occurrence: None)
  Receive Date: 20100520
  Receipt Date: 20090604
  Transmission Date: 20101027
  Serious: Yes (Other)
  Sender: FDA-Public Use
  Company Number: 2008003832

PATIENT
  Age: 73 Year
  Sex: Female

DRUGS (25)
  1. PROVERA [Suspect]
     Indication: HORMONE REPLACEMENT THERAPY
     Dosage: ORAL ; ORAL ; ORAL
     Route: 048
     Dates: start: 19891025, end: 19910520
  2. PROVERA [Suspect]
     Indication: HORMONE REPLACEMENT THERAPY
     Dosage: ORAL ; ORAL ; ORAL
     Route: 048
     Dates: start: 19910626, end: 19991013
  3. PROVERA [Suspect]
     Indication: HORMONE REPLACEMENT THERAPY
     Dosage: ORAL ; ORAL ; ORAL
     Route: 048
     Dates: start: 20020101, end: 20040524
  4. OGEN [Suspect]
     Indication: HORMONE REPLACEMENT THERAPY
     Dosage: ORAL
     Route: 048
     Dates: start: 19910520, end: 20040203
  5. PROGESTERONE [Suspect]
     Indication: HORMONE REPLACEMENT THERAPY
     Dates: start: 19910520, end: 19910626
  6. ESTROGENS () [Suspect]
     Indication: HORMONE REPLACEMENT THERAPY
     Dates: start: 19890108, end: 19900622
  7. ESTROGENS CONJUGATED (ESTROGENS CONJUGATED) TABLET [Suspect]
     Indication: HORMONE REPLACEMENT THERAPY
     Dates: start: 19900622, end: 19910520
  8. CENESTIN [Suspect]
     Indication: HORMONE REPLACEMENT THERAPY
     Dates: start: 20040203, end: 20040524
  9. PREMPRO [Suspect]
     Indication: HORMONE REPLACEMENT THERAPY
     Dates: start: 20040524, end: 20051231
  10. MEDROXYPROGESTERONE ACETATE [Suspect]
     Indication: HORMONE REPLACEMENT THERAPY
     Dates: start: 19991013, end: 20020101
  11. METFORMIN HCL [Concomitant]
  12. CARDIZEM CD [Concomitant]
  13. NAPROXEN [Concomitant]
  14. TRAMADOL HCL [Concomitant]
  15. SYNTHROID [Concomitant]
  16. DIOVANE (VALSARTAN) [Concomitant]
  17. HYDROCHLOROTHIAZIDE [Concomitant]
  18. SITAGLIPTIN (SITAGLIPTIN) [Concomitant]
  19. CRESTOR [Concomitant]
  20. OCUVITE (ASCORBIC ACID, RETINOL, TOCOPHEROL) [Concomitant]
  21. FUROSEMIDE [Concomitant]
  22. KLOR-CON [Concomitant]
  23. ISOPHANE INSULIN [Concomitant]
  24. INSULIN, REGULAR (INSULIN) [Concomitant]
  25. FOSAMAX [Concomitant]

REACTIONS (1)
  - BREAST CANCER FEMALE [None]
